FAERS Safety Report 6089764-1 (Version None)
Quarter: 2009Q1

REPORT INFORMATION
  Report Type: 
  Country: None (occurrence: None)
  Receive Date: 20090220
  Receipt Date: 20090206
  Transmission Date: 20090719
  Serious: Yes (Other)
  Sender: FDA-Public Use
  Company Number: 2009S1001008

PATIENT
  Age: 78 Year
  Sex: Female
  Weight: 87.9978 kg

DRUGS (3)
  1. LISINOPRIL [Suspect]
     Indication: HYPERTENSION
     Dosage: 10 MG;DAILY;ORAL
     Route: 048
     Dates: start: 20080228, end: 20080101
  2. LISINOPRIL [Suspect]
     Indication: HYPERTENSION
     Dosage: 10 MG; DAILY; ORAL
     Route: 048
     Dates: start: 20080101, end: 20080101
  3. ACID REDUCER [Concomitant]

REACTIONS (2)
  - COUGH [None]
  - THROAT IRRITATION [None]
